FAERS Safety Report 11169422 (Version 2)
Quarter: 2015Q2

REPORT INFORMATION
  Report Type: Spontaneous
  Country: US (occurrence: US)
  Receive Date: 20150605
  Receipt Date: 20150609
  Transmission Date: 20150821
  Serious: No
  Sender: FDA-Public Use
  Company Number: US-GLAXOSMITHKLINE-US2015GSK077900

PATIENT
  Sex: Female

DRUGS (2)
  1. VALACICLOVIR HYDROCHLORIDE CAPSULE [Suspect]
     Active Substance: VALACYCLOVIR HYDROCHLORIDE
     Indication: HERPES SIMPLEX
     Dosage: UNK, U
     Route: 065
     Dates: start: 2012
  2. VALACICLOVIR HYDROCHLORIDE CAPSULE [Suspect]
     Active Substance: VALACYCLOVIR HYDROCHLORIDE
     Indication: HERPES SIMPLEX

REACTIONS (2)
  - Drug ineffective [Unknown]
  - Skin discolouration [Unknown]
